FAERS Safety Report 9596143 (Version 2)
Quarter: 2013Q4

REPORT INFORMATION
  Report Type: Report from Study
  Country: ZA (occurrence: ZA)
  Receive Date: 20131004
  Receipt Date: 20131004
  Transmission Date: 20140711
  Serious: Yes (Death, Hospitalization)
  Sender: FDA-Public Use
  Company Number: ZA-ROCHE-1203267

PATIENT
  Sex: Female

DRUGS (2)
  1. MIRCERA [Suspect]
     Indication: NEPHROGENIC ANAEMIA
     Route: 058
     Dates: start: 20120507
  2. MIRCERA [Suspect]
     Route: 058
     Dates: start: 20130124

REACTIONS (2)
  - Myocardial infarction [Fatal]
  - Abdominal pain [Unknown]
